FAERS Safety Report 8978887 (Version 2)
Quarter: 2012Q4

REPORT INFORMATION
  Report Type: 
  Country: AU (occurrence: AU)
  Receive Date: 20121221
  Receipt Date: 20121224
  Transmission Date: 20130627
  Serious: Yes (Other)
  Sender: FDA-Public Use
  Company Number: PHHY2012AU116450

PATIENT
  Age: 60 Year
  Sex: Male

DRUGS (2)
  1. CEFTRIAXONE [Suspect]
     Route: 042
  2. BENZYLPENICILLIN [Suspect]
     Route: 042

REACTIONS (5)
  - Jarisch-Herxheimer reaction [Recovered/Resolved]
  - Chills [Recovered/Resolved]
  - Hypertension [Recovered/Resolved]
  - Tachypnoea [Recovered/Resolved]
  - Tachycardia [Recovered/Resolved]
